FAERS Safety Report 8885647 (Version 3)
Quarter: 2013Q1

REPORT INFORMATION
  Report Type: Report from Study
  Country: AU (occurrence: AU)
  Receive Date: 20121105
  Receipt Date: 20130109
  Transmission Date: 20140127
  Serious: Yes (Other)
  Sender: FDA-Public Use
  Company Number: PHHY2012AU099941

PATIENT
  Age: 23 Year
  Sex: Male

DRUGS (1)
  1. CLOZARIL [Suspect]
     Indication: SCHIZOPHRENIA
     Dosage: 300 MG PER DAY
     Route: 048
     Dates: start: 20071127

REACTIONS (5)
  - Cardiac septal hypertrophy [Unknown]
  - Electrocardiogram QT prolonged [Recovering/Resolving]
  - Sinus tachycardia [Unknown]
  - Hypercholesterolaemia [Unknown]
  - Blood alkaline phosphatase increased [Unknown]
